FAERS Safety Report 18215713 (Version 1)
Quarter: 2020Q3

REPORT INFORMATION
  Report Type: Report from Study
  Country: CA (occurrence: CA)
  Receive Date: 20200831
  Receipt Date: 20200831
  Transmission Date: 20201103
  Serious: Yes (Other)
  Sender: FDA-Public Use
  Company Number: CA-ACCORD-198240

PATIENT
  Age: 16 Year
  Sex: Female

DRUGS (8)
  1. ETANERCEPT [Suspect]
     Active Substance: ETANERCEPT
     Indication: JUVENILE IDIOPATHIC ARTHRITIS
     Dosage: 1 EVERY 1 WEEKS
     Route: 058
  2. INDOMETACIN [Concomitant]
     Active Substance: INDOMETHACIN
  3. METHOTREXATE. [Suspect]
     Active Substance: METHOTREXATE
     Indication: PRODUCT USED FOR UNKNOWN INDICATION
  4. ETANERCEPT [Suspect]
     Active Substance: ETANERCEPT
     Indication: JUVENILE IDIOPATHIC ARTHRITIS
     Dosage: 1 EVERY 1 WEEKS
     Route: 058
  5. DESOXIMETASONE. [Concomitant]
     Active Substance: DESOXIMETASONE
  6. DICLOFENAC [Concomitant]
     Active Substance: DICLOFENAC
  7. PREDNISONE. [Concomitant]
     Active Substance: PREDNISONE
  8. RANITIDINE. [Concomitant]
     Active Substance: RANITIDINE

REACTIONS (6)
  - Nausea [Unknown]
  - Sacroiliitis [Unknown]
  - Dizziness [Unknown]
  - C-reactive protein increased [Unknown]
  - Joint swelling [Unknown]
  - White blood cell count decreased [Unknown]
